FAERS Safety Report 23101427 (Version 1)
Quarter: 2023Q4

REPORT INFORMATION
  Report Type: Spontaneous
  Country: IT (occurrence: IT)
  Receive Date: 20231024
  Receipt Date: 20231024
  Transmission Date: 20240110
  Serious: Yes (Life-Threatening, Hospitalization, Other)
  Sender: FDA-Public Use
  Company Number: IT-JNJFOC-20230737045

PATIENT
  Age: 43 Year
  Sex: Male
  Weight: 92 kg

DRUGS (3)
  1. TECVAYLI [Suspect]
     Active Substance: TECLISTAMAB-CQYV
     Indication: Plasma cell myeloma
     Dosage: STEP UP DOSES
     Route: 065
  2. TECVAYLI [Suspect]
     Active Substance: TECLISTAMAB-CQYV
     Dosage: FIRST FULL MAINTENANCE DOSE
     Route: 065
  3. TECVAYLI [Suspect]
     Active Substance: TECLISTAMAB-CQYV
     Dosage: NEXT MAINTENANCE DOSE OCCURRED AFTER 10 DAYS
     Route: 065

REACTIONS (5)
  - Myocardial infarction [Recovered/Resolved]
  - Acute respiratory failure [Recovered/Resolved]
  - Pleural thickening [Unknown]
  - Cytomegalovirus infection [Unknown]
  - Cytokine release syndrome [Unknown]

NARRATIVE: CASE EVENT DATE: 20230714
